FAERS Safety Report 19840505 (Version 1)
Quarter: 2021Q3

REPORT INFORMATION
  Report Type: Spontaneous
  Country: US (occurrence: US)
  Receive Date: 20210916
  Receipt Date: 20210916
  Transmission Date: 20211014
  Serious: No
  Sender: FDA-Public Use
  Company Number: US-DRREDDYS-SPO/USA/21/0139963

PATIENT
  Age: 72 Year
  Sex: Female
  Weight: 78.75 kg

DRUGS (1)
  1. NICOTINE. [Suspect]
     Active Substance: NICOTINE
     Indication: TOBACCO USER
     Route: 062
     Dates: start: 202108

REACTIONS (3)
  - Product use issue [Unknown]
  - Incorrect dose administered [Unknown]
  - Blood pressure increased [Unknown]
